FAERS Safety Report 17982204 (Version 1)
Quarter: 2020Q3

REPORT INFORMATION
  Report Type: Spontaneous
  Country: BE (occurrence: BE)
  Receive Date: 20200706
  Receipt Date: 20200706
  Transmission Date: 20201103
  Serious: Yes (Hospitalization)
  Sender: FDA-Public Use
  Company Number: BE-TEVA-2020-BE-1796712

PATIENT
  Age: 48 Year
  Sex: Female

DRUGS (3)
  1. FOLINIC ACID [Concomitant]
     Active Substance: LEUCOVORIN
     Indication: COLON CANCER METASTATIC
     Dosage: 10 CYCLES
     Route: 065
     Dates: start: 201802, end: 201808
  2. 5?FLUOROURACIL [Concomitant]
     Active Substance: FLUOROURACIL
     Indication: COLON CANCER METASTATIC
     Dosage: 10 CYCLES
     Route: 065
     Dates: start: 201802, end: 201808
  3. OXALIPLATIN. [Suspect]
     Active Substance: OXALIPLATIN
     Indication: COLON CANCER METASTATIC
     Dosage: CUMULATIVE DOSE OF 850 MG/M2 (10 CYCLES)
     Route: 065
     Dates: start: 201802, end: 201808

REACTIONS (2)
  - Guillain-Barre syndrome [Recovering/Resolving]
  - Campylobacter infection [Unknown]

NARRATIVE: CASE EVENT DATE: 2018
